FAERS Safety Report 14831980 (Version 1)
Quarter: 2018Q2

REPORT INFORMATION
  Report Type: Spontaneous
  Country: US (occurrence: US)
  Receive Date: 20180501
  Receipt Date: 20180501
  Transmission Date: 20180711
  Serious: Yes (Hospitalization)
  Sender: FDA-Public Use
  Company Number: US-ALKERMES INC.-ALK-2018-002413

PATIENT
  Sex: Male

DRUGS (3)
  1. VIVITROL [Suspect]
     Active Substance: NALTREXONE
     Indication: ALCOHOLISM
     Dosage: 380 MG, QMO
     Route: 030
     Dates: start: 201802
  2. MORPHINE [Suspect]
     Active Substance: MORPHINE
     Indication: POST-TRAUMATIC PAIN
     Dosage: UNK
     Route: 042
     Dates: start: 201804
  3. NORCO [Suspect]
     Active Substance: ACETAMINOPHEN\HYDROCODONE BITARTRATE
     Indication: POST-TRAUMATIC PAIN
     Dosage: UNK
     Route: 042
     Dates: start: 201804

REACTIONS (13)
  - Fall [Unknown]
  - Jaw fracture [Unknown]
  - Rotator cuff syndrome [Unknown]
  - Malaise [Unknown]
  - Tympanic membrane perforation [Unknown]
  - Joint dislocation [Unknown]
  - Loss of consciousness [Unknown]
  - Clavicle fracture [Unknown]
  - Concussion [Unknown]
  - Speech disorder [Unknown]
  - Post-traumatic pain [Unknown]
  - Inadequate analgesia [Unknown]
  - Vomiting [Unknown]

NARRATIVE: CASE EVENT DATE: 20180421
